FAERS Safety Report 11121250 (Version 1)
Quarter: 2015Q2

REPORT INFORMATION
  Report Type: Report from Study
  Country: US (occurrence: US)
  Receive Date: 20150519
  Receipt Date: 20150519
  Transmission Date: 20150821
  Serious: Yes (Other)
  Sender: FDA-Public Use
  Company Number: US-BIOGENIDEC-2015BI064278

PATIENT
  Sex: Female

DRUGS (1)
  1. AVONEX [Suspect]
     Active Substance: INTERFERON BETA-1A
     Indication: MULTIPLE SCLEROSIS
     Route: 030
     Dates: start: 19990701

REACTIONS (8)
  - Arthropathy [Unknown]
  - Feeling hot [Unknown]
  - Musculoskeletal disorder [Unknown]
  - Hyperhidrosis [Unknown]
  - Graft complication [Unknown]
  - Malignant melanoma [Recovered/Resolved]
  - Sinus disorder [Not Recovered/Not Resolved]
  - Ear disorder [Unknown]
